FAERS Safety Report 4879468-2 (Version None)
Quarter: 2005Q4

REPORT INFORMATION
  Report Type: 
  Country: None (occurrence: None)
  Receive Date: 20051209
  Receipt Date: 20050930
  Transmission Date: 20060501
  Serious: Yes (Death, Other)
  Sender: FDA-Public Use
  Company Number: USA-2005-0021380

PATIENT
  Age: 39 Year
  Sex: Male
  Weight: 94.8018 kg

DRUGS (3)
  1. OXYCONTIN [Suspect]
     Indication: NECK PAIN
     Route: 065
  2. VALIUM [Suspect]
     Indication: NECK PAIN
     Route: 065
  3. VICODIN [Concomitant]

REACTIONS (2)
  - ACCIDENTAL OVERDOSE [None]
  - VOMITING [None]
